FAERS Safety Report 5729086-9 (Version None)
Quarter: 2008Q2

REPORT INFORMATION
  Report Type: 
  Country: None (occurrence: None)
  Receive Date: 20080505
  Receipt Date: 20080505
  Transmission Date: 20081010
  Serious: Yes (Other)
  Sender: FDA-Public Use
  Company Number: None

PATIENT
  Sex: Female

DRUGS (1)
  1. CYCLESSA [Suspect]
     Indication: DYSMENORRHOEA
     Dosage: ONCE QD
     Dates: start: 20040101

REACTIONS (2)
  - ABDOMINAL DISCOMFORT [None]
  - DYSMENORRHOEA [None]
